FAERS Safety Report 15310330 (Version 2)
Quarter: 2018Q4

REPORT INFORMATION
  Report Type: Spontaneous
  Country: US (occurrence: US)
  Receive Date: 20180823
  Receipt Date: 20181129
  Transmission Date: 20190204
  Serious: Yes (Other)
  Sender: FDA-Public Use
  Company Number: US-NOVOPROD-617463

PATIENT
  Age: 76 Year
  Sex: Female

DRUGS (1)
  1. LEVEMIR [Suspect]
     Active Substance: INSULIN DETEMIR
     Indication: TYPE 2 DIABETES MELLITUS
     Dosage: 40 UNITS DAILY
     Route: 058

REACTIONS (10)
  - Limb mass [Not Recovered/Not Resolved]
  - Herpes zoster [Recovered/Resolved]
  - Balance disorder [Unknown]
  - Vein disorder [Recovering/Resolving]
  - Herpes zoster [Unknown]
  - Poor quality sleep [Recovered/Resolved]
  - Ophthalmic herpes zoster [Recovered/Resolved]
  - Fall [Unknown]
  - Poor peripheral circulation [Not Recovered/Not Resolved]
  - Wrist fracture [Not Recovered/Not Resolved]

NARRATIVE: CASE EVENT DATE: 201712
